FAERS Safety Report 5893622-2 (Version None)
Quarter: 2008Q3

REPORT INFORMATION
  Report Type: 
  Country: None (occurrence: None)
  Receive Date: 20080923
  Receipt Date: 20070920
  Transmission Date: 20090109
  Serious: No
  Sender: FDA-Public Use
  Company Number: US-ASTRAZENECA-2007UW22195

PATIENT
  Age: 55 Year
  Sex: Female
  Weight: 54.5 kg

DRUGS (6)
  1. SEROQUEL [Suspect]
     Route: 048
  2. ADDERALL 10 [Concomitant]
  3. CLONAZEPAM [Concomitant]
  4. LUNESTA [Concomitant]
     Indication: POOR QUALITY SLEEP
     Route: 048
     Dates: start: 20070429, end: 20070101
  5. LUNESTA [Concomitant]
     Route: 048
     Dates: start: 20070101, end: 20070101
  6. LUNESTA [Concomitant]
     Route: 048

REACTIONS (1)
  - MALAISE [None]
